FAERS Safety Report 6216858-X (Version None)
Quarter: 2009Q2

REPORT INFORMATION
  Report Type: 
  Country: None (occurrence: None)
  Receive Date: 20090603
  Receipt Date: 20090603
  Transmission Date: 20091009
  Serious: Yes (Life-Threatening, Hospitalization)
  Sender: FDA-Public Use
  Company Number: None

PATIENT
  Sex: Female
  Weight: 86.1834 kg

DRUGS (1)
  1. LISINOPRIL [Suspect]
     Indication: HYPERTENSION
     Dosage: 40 MG ONE A DAY MOUTH, YEARS
     Route: 048

REACTIONS (4)
  - HEART RATE IRREGULAR [None]
  - PHARYNGEAL OEDEMA [None]
  - POST-TRAUMATIC STRESS DISORDER [None]
  - SWOLLEN TONGUE [None]
